FAERS Safety Report 5244142-X (Version None)
Quarter: 2007Q1

REPORT INFORMATION
  Report Type: 
  Country: None (occurrence: None)
  Receive Date: 20070222
  Receipt Date: 20070213
  Transmission Date: 20070707
  Serious: Yes (Hospitalization)
  Sender: FDA-Public Use
  Company Number: JP-ROCHE-481286

PATIENT
  Age: 14 Year
  Sex: Male
  Weight: 63 kg

DRUGS (1)
  1. TAMIFLU [Suspect]
     Route: 048
     Dates: start: 20070129, end: 20070129

REACTIONS (1)
  - DEPRESSED LEVEL OF CONSCIOUSNESS [None]
